FAERS Safety Report 5821643-4 (Version None)
Quarter: 2008Q3

REPORT INFORMATION
  Report Type: 
  Country: None (occurrence: None)
  Receive Date: 20080724
  Receipt Date: 20080714
  Transmission Date: 20090109
  Serious: Yes (Other)
  Sender: FDA-Public Use
  Company Number: JP-SANOFI-SYNTHELABO-A01200808486

PATIENT
  Sex: Female

DRUGS (7)
  1. MUSCURATE [Concomitant]
     Indication: GENERAL ANAESTHESIA
     Route: 042
     Dates: start: 20070702, end: 20070702
  2. FENTANYL-100 [Concomitant]
     Indication: GENERAL ANAESTHESIA
     Route: 042
     Dates: start: 20070702, end: 20070702
  3. SEVOFLURANE [Concomitant]
     Indication: GENERAL ANAESTHESIA
     Dosage: UNK
     Route: 055
     Dates: start: 20070702, end: 20070702
  4. PRECEDEX [Suspect]
     Indication: SEDATIVE THERAPY
     Dosage: RATE OF 3.6 ML/HRS IE 180 MG
     Route: 042
     Dates: start: 20070702, end: 20070702
  5. PRECEDEX [Interacting]
     Dosage: RATE OF 3.1 ML/HRS IE 2,945 MG
     Route: 042
     Dates: start: 20070702, end: 20070702
  6. PENTAGIN [Interacting]
     Indication: SEDATIVE THERAPY
     Dosage: RATE OF 3.6 ML/HRS IE 27 MG
     Route: 042
     Dates: start: 20070702, end: 20070702
  7. PENTAGIN [Interacting]
     Dosage: RATE OF 3.1 ML/HRS IE 441.75 MG
     Route: 042
     Dates: start: 20070702, end: 20070702

REACTIONS (2)
  - BRADYCARDIA [None]
  - DRUG INTERACTION [None]
